FAERS Safety Report 19211782 (Version 1)
Quarter: 2021Q2

REPORT INFORMATION
  Report Type: Spontaneous
  Country: US (occurrence: US)
  Receive Date: 20210504
  Receipt Date: 20210504
  Transmission Date: 20210717
  Serious: No
  Sender: FDA-Public Use
  Company Number: US-ASTRAZENECA-2021A296566

PATIENT
  Sex: Female
  Weight: 84.8 kg

DRUGS (2)
  1. FASENRA [Suspect]
     Active Substance: BENRALIZUMAB
     Indication: PULMONARY EOSINOPHILIA
     Route: 058
     Dates: start: 20180901
  2. FASENRA [Suspect]
     Active Substance: BENRALIZUMAB
     Indication: ASTHMA
     Route: 058
     Dates: start: 20180901

REACTIONS (2)
  - Cough [Recovering/Resolving]
  - Dyspnoea [Unknown]
